FAERS Safety Report 18902203 (Version 3)
Quarter: 2021Q3

REPORT INFORMATION
  Report Type: Spontaneous
  Country: US (occurrence: US)
  Receive Date: 20210216
  Receipt Date: 20210708
  Transmission Date: 20211014
  Serious: Yes (Other)
  Sender: FDA-Public Use
  Company Number: US-GILEAD-2021-0515583

PATIENT
  Sex: Male
  Weight: 119.73 kg

DRUGS (86)
  1. ATRIPLA [Suspect]
     Active Substance: EFAVIRENZ\EMTRICITABINE\TENOFOVIR DISOPROXIL FUMARATE
     Dosage: UNK
     Route: 065
     Dates: start: 201407, end: 201410
  2. ARIPIPRAZOLE. [Concomitant]
     Active Substance: ARIPIPRAZOLE
  3. ASPIRIN 81 [Concomitant]
     Active Substance: ASPIRIN
  4. DOXYCYCLINE HYCLATE. [Concomitant]
     Active Substance: DOXYCYCLINE HYCLATE
  5. HYDROXYZINE [Concomitant]
     Active Substance: HYDROXYZINE HYDROCHLORIDE
  6. LYRICA [Concomitant]
     Active Substance: PREGABALIN
  7. NAPROXEN. [Concomitant]
     Active Substance: NAPROXEN
  8. OMEPRAZOLE. [Concomitant]
     Active Substance: OMEPRAZOLE
  9. OXYCODONE [Concomitant]
     Active Substance: OXYCODONE
  10. TRIUMEQ [Concomitant]
     Active Substance: ABACAVIR SULFATE\DOLUTEGRAVIR SODIUM\LAMIVUDINE
  11. ATRIPLA [Suspect]
     Active Substance: EFAVIRENZ\EMTRICITABINE\TENOFOVIR DISOPROXIL FUMARATE
     Dosage: UNK
     Route: 065
     Dates: start: 201312, end: 201406
  12. AMANTADINE. [Concomitant]
     Active Substance: AMANTADINE HYDROCHLORIDE
  13. AMOXICILLIN. [Concomitant]
     Active Substance: AMOXICILLIN
  14. CALCIUM CARBONATE. [Concomitant]
     Active Substance: CALCIUM CARBONATE
  15. CARBIDOPA AND LEVODOPA [Concomitant]
     Active Substance: CARBIDOPA\LEVODOPA
  16. CEPHALEXIN HCL [Concomitant]
     Active Substance: CEPHALEXIN HYDROCHLORIDE
  17. CLONAZEPAM. [Concomitant]
     Active Substance: CLONAZEPAM
  18. DEPO TESTOSTERONE [Concomitant]
     Active Substance: TESTOSTERONE
  19. IMODIUM [Concomitant]
     Active Substance: LOPERAMIDE HYDROCHLORIDE
  20. SIMVASTATIN. [Concomitant]
     Active Substance: SIMVASTATIN
  21. CIPROFLOXACIN. [Concomitant]
     Active Substance: CIPROFLOXACIN
  22. CYMBALTA [Concomitant]
     Active Substance: DULOXETINE HYDROCHLORIDE
  23. FENOBIBRATE [Concomitant]
     Active Substance: FENOFIBRATE
  24. FLUTICASONE. [Concomitant]
     Active Substance: FLUTICASONE
  25. KETOCONAZOLE. [Concomitant]
     Active Substance: KETOCONAZOLE
  26. OFLOXACIN. [Concomitant]
     Active Substance: OFLOXACIN
  27. RANITIDINE. [Concomitant]
     Active Substance: RANITIDINE
  28. TESTOSTERONE CYPIONATE. [Concomitant]
     Active Substance: TESTOSTERONE CYPIONATE
  29. TRAMADOL. [Concomitant]
     Active Substance: TRAMADOL
  30. TRAZODONE [Concomitant]
     Active Substance: TRAZODONE HYDROCHLORIDE
  31. TRILIPIX [Concomitant]
     Active Substance: FENOFIBRIC ACID
  32. ACETAMINOPHEN. [Concomitant]
     Active Substance: ACETAMINOPHEN
  33. CEFUROXIME. [Concomitant]
     Active Substance: CEFUROXIME
  34. METFORMIN [Concomitant]
     Active Substance: METFORMIN HYDROCHLORIDE
  35. MUPIROCIN. [Concomitant]
     Active Substance: MUPIROCIN
  36. OXCARBAZEPINE. [Concomitant]
     Active Substance: OXCARBAZEPINE
  37. PROPOXYPHENE. [Concomitant]
     Active Substance: PROPOXYPHENE
  38. RISPERIDONE. [Concomitant]
     Active Substance: RISPERIDONE
  39. SMZ?TMP [Concomitant]
     Active Substance: SULFAMETHOXAZOLE\TRIMETHOPRIM
  40. ZOLPIDEM [Concomitant]
     Active Substance: ZOLPIDEM TARTRATE
  41. ATRIPLA [Suspect]
     Active Substance: EFAVIRENZ\EMTRICITABINE\TENOFOVIR DISOPROXIL FUMARATE
     Dosage: UNK
     Route: 065
     Dates: start: 201002, end: 201311
  42. AZITHROMYCIN ANHYDROUS. [Concomitant]
     Active Substance: AZITHROMYCIN ANHYDROUS
  43. DIVALPROEX [Concomitant]
     Active Substance: DIVALPROEX SODIUM
  44. FINASTERIDE. [Concomitant]
     Active Substance: FINASTERIDE
  45. HYDROCODONE [Concomitant]
     Active Substance: HYDROCODONE
  46. IBUPROFEN. [Concomitant]
     Active Substance: IBUPROFEN
  47. LISINOPRIL. [Concomitant]
     Active Substance: LISINOPRIL
  48. METRONIDAZOLE. [Concomitant]
     Active Substance: METRONIDAZOLE
  49. PENICILLIN B [Concomitant]
     Active Substance: PHENETICILLIN
  50. TRADJENTA [Concomitant]
     Active Substance: LINAGLIPTIN
  51. VITAMIN D3 [Concomitant]
     Active Substance: CHOLECALCIFEROL
  52. ZIPRASIDONE. [Concomitant]
     Active Substance: ZIPRASIDONE
  53. ATRIPLA [Suspect]
     Active Substance: EFAVIRENZ\EMTRICITABINE\TENOFOVIR DISOPROXIL FUMARATE
     Indication: HIV INFECTION
     Dosage: UNK
     Route: 048
     Dates: start: 2009
  54. APAP/CODEINE [CODEINE PHOSPHATE;PARACETAMOL] [Concomitant]
  55. ATORVASTATIN [Concomitant]
     Active Substance: ATORVASTATIN
  56. CETIRIZINE [Concomitant]
     Active Substance: CETIRIZINE HYDROCHLORIDE
  57. CHANTIX [Concomitant]
     Active Substance: VARENICLINE TARTRATE
  58. CITALOPRAM [Concomitant]
     Active Substance: CITALOPRAM HYDROBROMIDE
  59. CRESTOR [Concomitant]
     Active Substance: ROSUVASTATIN CALCIUM
  60. GABAPENTIN. [Concomitant]
     Active Substance: GABAPENTIN
  61. LOVAZA [Concomitant]
     Active Substance: OMEGA-3-ACID ETHYL ESTERS
  62. MECLIZINE HCL [Concomitant]
     Active Substance: MECLIZINE HYDROCHLORIDE
  63. MELOXICAM. [Concomitant]
     Active Substance: MELOXICAM
  64. PENTOXIFYLLINE. [Concomitant]
     Active Substance: PENTOXIFYLLINE
  65. PRESERVISION [Concomitant]
     Active Substance: MINERALS\VITAMINS
  66. SAPHRIS [Concomitant]
     Active Substance: ASENAPINE MALEATE
  67. TAMSULOSIN [Concomitant]
     Active Substance: TAMSULOSIN
  68. TERBINAFINE. [Concomitant]
     Active Substance: TERBINAFINE
  69. TRUEPLUS GLUCOSE [Concomitant]
  70. VITAMIN C [Concomitant]
     Active Substance: ASCORBIC ACID
  71. ATRIPLA [Suspect]
     Active Substance: EFAVIRENZ\EMTRICITABINE\TENOFOVIR DISOPROXIL FUMARATE
     Dosage: UNK
     Route: 065
     Dates: start: 201411, end: 201511
  72. BLINK TEARS [Concomitant]
     Active Substance: POLYETHYLENE GLYCOL 400
  73. DULOXETINE. [Concomitant]
     Active Substance: DULOXETINE
  74. FARXIGA [Concomitant]
     Active Substance: DAPAGLIFLOZIN PROPANEDIOL
  75. METHYLPREDNISOLONE. [Concomitant]
     Active Substance: METHYLPREDNISOLONE
  76. VASCEPA [Concomitant]
     Active Substance: ICOSAPENT ETHYL
  77. ANDROGEL [Concomitant]
     Active Substance: TESTOSTERONE
  78. BENZTROPINE [BENZATROPINE] [Concomitant]
     Active Substance: BENZTROPINE
  79. DOXYCYCLINE. [Concomitant]
     Active Substance: DOXYCYCLINE
  80. GLIPIZIDE. [Concomitant]
     Active Substance: GLIPIZIDE
  81. LAMOTRIGINE. [Concomitant]
     Active Substance: LAMOTRIGINE
  82. LEVOFLOXACIN. [Concomitant]
     Active Substance: LEVOFLOXACIN
  83. LORAZEPAM. [Concomitant]
     Active Substance: LORAZEPAM
  84. PREGABALIN. [Concomitant]
     Active Substance: PREGABALIN
  85. PROPANOLOL [PROPRANOLOL] [Concomitant]
     Active Substance: PROPRANOLOL HYDROCHLORIDE
  86. ROSUVASTATIN. [Concomitant]
     Active Substance: ROSUVASTATIN

REACTIONS (6)
  - Emotional distress [Not Recovered/Not Resolved]
  - Anhedonia [Not Recovered/Not Resolved]
  - Anxiety [Not Recovered/Not Resolved]
  - Bone density decreased [Unknown]
  - Pain [Not Recovered/Not Resolved]
  - Osteoporosis [Not Recovered/Not Resolved]

NARRATIVE: CASE EVENT DATE: 2016
